FAERS Safety Report 17864629 (Version 3)
Quarter: 2020Q3

REPORT INFORMATION
  Report Type: Spontaneous
  Country: SE (occurrence: SE)
  Receive Date: 20200605
  Receipt Date: 20200707
  Transmission Date: 20201103
  Serious: Yes (Death, Hospitalization, Other)
  Sender: FDA-Public Use
  Company Number: SE-US WORLDMEDS, LLC-E2B_00003323

PATIENT
  Sex: Female

DRUGS (29)
  1. DUODOPA [Suspect]
     Active Substance: CARBIDOPA\LEVODOPA
     Dosage: CURRENT DOSAGES:  MORNING DOSE 4 ML CONTINUOUS DOSE 2 ML/H ED 0.7 ML
     Route: 050
     Dates: start: 20190603, end: 201906
  2. DUODOPA [Suspect]
     Active Substance: CARBIDOPA\LEVODOPA
     Dosage: MORNING DOSE DECREASED TO 3.5 ML
     Route: 050
  3. DUODOPA [Suspect]
     Active Substance: CARBIDOPA\LEVODOPA
     Dosage: MORNING DOSE 5.5 ML. CONTINUOUS DOSE  2 ML/H. TWO EXTRA DOSE 1 ML.
     Route: 050
     Dates: start: 20200310, end: 202003
  4. DUODOPA [Suspect]
     Active Substance: CARBIDOPA\LEVODOPA
     Dosage: MORNING DOSE  4.5 ML  CONTINUOUS DOSE 2.2 ML/H
     Route: 050
     Dates: start: 20121212, end: 2019
  5. LEVETIRACETAM. [Concomitant]
     Active Substance: LEVETIRACETAM
     Dosage: NOT PROVIDED
     Route: 065
     Dates: start: 202006
  6. BETOLVEX /00056201/ [Concomitant]
     Active Substance: CYANOCOBALAMIN
     Dosage: NOT PROVIDED
     Route: 065
  7. OXYCODONE [Concomitant]
     Active Substance: OXYCODONE
     Dosage: NOT PROVIDED
     Route: 065
     Dates: start: 202006
  8. DUODOPA [Suspect]
     Active Substance: CARBIDOPA\LEVODOPA
     Dosage: MORNING DOSE 5.5 ML. CONTINUOUS DOSE 1.8 ML/H. TWO EXTRA DOSE 1 ML.
     Route: 050
     Dates: start: 202003, end: 2020
  9. CALCICHEW [Concomitant]
     Active Substance: CALCIUM CARBONATE
     Dosage: NOT PROVIDED
     Route: 065
  10. FOLACIN /00024201/ [Concomitant]
     Active Substance: FOLIC ACID
     Dosage: NOT PROVIDED
     Route: 065
  11. SIMVASTATIN. [Concomitant]
     Active Substance: SIMVASTATIN
     Dosage: NOT PROVIDED
     Route: 065
  12. KLEXANE [Concomitant]
     Active Substance: ENOXAPARIN
     Dosage: NOT PROVIDED
     Route: 065
     Dates: start: 20200611
  13. DUODOPA [Suspect]
     Active Substance: CARBIDOPA\LEVODOPA
     Dosage: CONTINUOUS DOSE DECREASED TO 1.8ML/H FROM 2 ML/H MORNING DOSE: 4ML
     Route: 050
     Dates: start: 20190626
  14. DUODOPA [Suspect]
     Active Substance: CARBIDOPA\LEVODOPA
     Dosage: CURRENT DOSAGE: MORNING DOSE: 6 ML CONTINUOUS DOSE: 1.8 ML/H EXTRA DOSE: 1.5 ML
     Route: 050
     Dates: start: 2020
  15. NEORECORMON MULTIDOSE [Concomitant]
     Dosage: NOT PROVIDED
     Route: 065
  16. MORPHINE [Concomitant]
     Active Substance: MORPHINE
     Dosage: NOT PROVIDED
     Route: 065
  17. DUODOPA [Suspect]
     Active Substance: CARBIDOPA\LEVODOPA
     Indication: PARKINSON^S DISEASE
     Dosage: MORNING DOSE 7 ML CONTINUOUS DOSE 2.2 ML/H EXTRA DOSE 0.7 ML
     Route: 050
  18. DUODOPA [Suspect]
     Active Substance: CARBIDOPA\LEVODOPA
     Dosage: CONTINUOUS DOSE INCREASED WITH 0.2 ML/H TO 2.2 ML/H.
     Route: 050
  19. CANDESARTAN. [Concomitant]
     Active Substance: CANDESARTAN
     Dosage: NOT PROVIDED
     Route: 065
  20. XADAGO [Suspect]
     Active Substance: SAFINAMIDE MESYLATE
     Indication: PRODUCT USED FOR UNKNOWN INDICATION
     Route: 048
  21. XARELTO [Concomitant]
     Active Substance: RIVAROXABAN
     Dosage: NOT PROVIDED
  22. TROMBYL [Concomitant]
     Active Substance: ASPIRIN
     Dosage: NOT PROVIDED
     Route: 065
  23. CARBAMAZEPINE. [Concomitant]
     Active Substance: CARBAMAZEPINE
     Dosage: NOT PROVIDED
     Route: 065
     Dates: start: 202006
  24. DUODOPA [Suspect]
     Active Substance: CARBIDOPA\LEVODOPA
     Dosage: 20 MG/ML 5 MG/ML
     Route: 050
     Dates: start: 20121111, end: 2012
  25. DUODOPA [Suspect]
     Active Substance: CARBIDOPA\LEVODOPA
     Dosage: CURRENT DOSAGE: MORNING DOSE: 6 ML CONTINUOUS DOSE: 1.8 ML/H EXTRA DOSE: 1 ML
     Route: 050
     Dates: start: 20200421, end: 2020
  26. METOPROLOL. [Concomitant]
     Active Substance: METOPROLOL
     Dosage: NOT PROVIDED
     Route: 065
  27. STESOLID [Concomitant]
     Active Substance: DIAZEPAM
     Dosage: NOT PROVIDED
     Route: 065
  28. XADAGO [Suspect]
     Active Substance: SAFINAMIDE MESYLATE
     Route: 048
     Dates: start: 20200507, end: 202005
  29. LEVETIRACETAM. [Concomitant]
     Active Substance: LEVETIRACETAM
     Dosage: NOT PROVIDED
     Route: 065

REACTIONS (30)
  - Tremor [Unknown]
  - Pain [Not Recovered/Not Resolved]
  - Syncope [Not Recovered/Not Resolved]
  - Vomiting [Unknown]
  - Fall [Unknown]
  - Hyperkinesia [Recovered/Resolved]
  - Toe walking [Not Recovered/Not Resolved]
  - Hypertension [Unknown]
  - Pulmonary embolism [Unknown]
  - Musculoskeletal stiffness [Not Recovered/Not Resolved]
  - On and off phenomenon [Not Recovered/Not Resolved]
  - General physical health deterioration [Unknown]
  - Parkinson^s disease [Not Recovered/Not Resolved]
  - Unevaluable event [Recovered/Resolved]
  - Head injury [Unknown]
  - Myocardial infarction [Unknown]
  - Epilepsy [Not Recovered/Not Resolved]
  - Freezing phenomenon [Not Recovered/Not Resolved]
  - Hyperkinesia [Unknown]
  - Weight decreased [Not Recovered/Not Resolved]
  - Fat tissue decreased [Unknown]
  - Hypophagia [Unknown]
  - Fluid intake reduced [Fatal]
  - Asthenia [Unknown]
  - Ageusia [Not Recovered/Not Resolved]
  - Death [Fatal]
  - Unresponsive to stimuli [Not Recovered/Not Resolved]
  - Hypotension [Not Recovered/Not Resolved]
  - Malnutrition [Unknown]
  - Seizure [Unknown]

NARRATIVE: CASE EVENT DATE: 20190502
